FAERS Safety Report 13166123 (Version 1)
Quarter: 2017Q1

REPORT INFORMATION
  Report Type: Spontaneous
  Country: US (occurrence: US)
  Receive Date: 20170127
  Receipt Date: 20170127
  Transmission Date: 20170428
  Serious: Yes (Hospitalization)
  Sender: FDA-Public Use
  Company Number: None

PATIENT
  Age: 52 Year
  Sex: Male
  Weight: 109.8 kg

DRUGS (7)
  1. MERCAPTOPURINE. [Suspect]
     Active Substance: MERCAPTOPURINE
     Dates: end: 20170110
  2. CYCLOPHOSPHAMIDE. [Suspect]
     Active Substance: CYCLOPHOSPHAMIDE
     Dates: end: 20161228
  3. METHOTREXATE. [Suspect]
     Active Substance: METHOTREXATE
     Dates: end: 20170104
  4. ONCASPAR [Suspect]
     Active Substance: PEGASPARGASE
     Dosage: 3750 UNIT
     Dates: end: 20161217
  5. CYTARABINE. [Suspect]
     Active Substance: CYTARABINE
     Dates: end: 20170107
  6. VINCRISTINE SULFATE. [Suspect]
     Active Substance: VINCRISTINE SULFATE
     Dates: end: 20161221
  7. DAUNORUBICIN [Suspect]
     Active Substance: DAUNORUBICIN
     Dates: end: 20161221

REACTIONS (18)
  - Intervertebral disc degeneration [None]
  - Oedema peripheral [None]
  - Fatigue [None]
  - Pancreatitis acute [None]
  - Post procedural complication [None]
  - Muscular weakness [None]
  - Tachycardia [None]
  - Hypertriglyceridaemia [None]
  - Hepatic steatosis [None]
  - Cholestasis [None]
  - Hepatobiliary disease [None]
  - Device related infection [None]
  - Catheter site erythema [None]
  - Vertebral foraminal stenosis [None]
  - Cough [None]
  - Epistaxis [None]
  - Hepatic enzyme increased [None]
  - Drug-induced liver injury [None]

NARRATIVE: CASE EVENT DATE: 20170111
